FAERS Safety Report 8968763 (Version 2)
Quarter: 2013Q1

REPORT INFORMATION
  Report Type: Spontaneous
  Country: US (occurrence: US)
  Receive Date: 20121217
  Receipt Date: 20130124
  Transmission Date: 20140127
  Serious: Yes (Other)
  Sender: FDA-Public Use
  Company Number: US-SHIONOGI, INC-2012000324

PATIENT
  Sex: 0

DRUGS (5)
  1. KAPVAY [Suspect]
     Indication: ATTENTION DEFICIT/HYPERACTIVITY DISORDER
     Dosage: 0.1 MG AT BEDTIME FOR 1 WEEK
     Dates: start: 20121016, end: 201210
  2. KAPVAY [Suspect]
     Dosage: 0.1 MG BID FOR 1 WEEK
     Dates: start: 201210
  3. KAPVAY [Suspect]
     Dosage: 0.1 MG IN THE AM AND 0.2MG AT BEDTIME
     Dates: start: 20121102, end: 20121130
  4. MOTRIN [Concomitant]
     Indication: MIGRAINE
     Dosage: UNK, PRN
  5. FIORICET [Concomitant]
     Indication: MIGRAINE
     Dosage: UNK, PRN

REACTIONS (2)
  - Diplopia [Recovered/Resolved]
  - Drug ineffective [Unknown]
